FAERS Safety Report 5595487-5 (Version None)
Quarter: 2008Q1

REPORT INFORMATION
  Report Type: 
  Country: None (occurrence: None)
  Receive Date: 20080118
  Receipt Date: 20080107
  Transmission Date: 20080703
  Serious: Yes (Hospitalization, Other)
  Sender: FDA-Public Use
  Company Number: CA-ELI_LILLY_AND_COMPANY-CA200801001647

PATIENT
  Age: 79 Year
  Sex: Female

DRUGS (10)
  1. FORTEO [Suspect]
     Indication: OSTEOPOROSIS
     Dosage: 20 UG, DAILY (1/D)
     Route: 058
     Dates: start: 20070703, end: 20080107
  2. METHOTREXATE [Concomitant]
  3. PREDNISONE [Concomitant]
  4. ASPIRIN [Concomitant]
     Dosage: 81 MG, UNK
  5. DOMPERIDONE [Concomitant]
  6. PANTOLOC /01263201/ [Concomitant]
  7. COVERSYL [Concomitant]
  8. LIPITOR [Concomitant]
  9. IMOVANE [Concomitant]
  10. CALCIUM WITH VITAMIN D /00944201/ [Concomitant]

REACTIONS (3)
  - ANKLE FRACTURE [None]
  - BONE PAIN [None]
  - FALL [None]
